FAERS Safety Report 12741543 (Version 2)
Quarter: 2016Q3

REPORT INFORMATION
  Report Type: Spontaneous
  Country: US (occurrence: US)
  Receive Date: 20160914
  Receipt Date: 20160916
  Transmission Date: 20161109
  Serious: Yes (Other)
  Sender: FDA-Public Use
  Company Number: US-DRREDDYS-USA/USA/16/0083076

PATIENT
  Age: 55 Year
  Sex: Male

DRUGS (1)
  1. MINOCYCLINE HYDROCHLORIDE. [Suspect]
     Active Substance: MINOCYCLINE HYDROCHLORIDE
     Indication: ACNE
     Route: 065

REACTIONS (4)
  - Pigmentation disorder [Unknown]
  - Skin hyperpigmentation [Unknown]
  - Nail pigmentation [Unknown]
  - Arthralgia [Unknown]
